FAERS Safety Report 4808544-5 (Version None)
Quarter: 2005Q4

REPORT INFORMATION
  Report Type: 
  Country: None (occurrence: None)
  Receive Date: 20051021
  Receipt Date: 20040804
  Transmission Date: 20060501
  Serious: Yes (Hospitalization)
  Sender: FDA-Public Use
  Company Number: FR_040804574

PATIENT
  Age: 22 Year
  Sex: Male
  Weight: 94 kg

DRUGS (3)
  1. ZYPREXA [Suspect]
     Dosage: 10 MG DAY
     Dates: start: 20030501, end: 20040514
  2. VALPROATE SODIUM [Concomitant]
  3. CITALOPRAM HYDROBROMIDE [Concomitant]

REACTIONS (3)
  - NEUTROPHIL COUNT DECREASED [None]
  - PLATELET COUNT DECREASED [None]
  - WHITE BLOOD CELL COUNT DECREASED [None]
